FAERS Safety Report 5449988-0 (Version None)
Quarter: 2007Q3

REPORT INFORMATION
  Report Type: 
  Country: None (occurrence: None)
  Receive Date: 20070912
  Receipt Date: 20070907
  Transmission Date: 20080115
  Serious: Yes (Other)
  Sender: FDA-Public Use
  Company Number: DE-AVENTIS-200717834GDDC

PATIENT
  Age: 43 Year
  Sex: Male

DRUGS (8)
  1. FLUOROURACIL [Suspect]
     Dosage: DOSE: 350 MG/M2 OVER 24 HOURS ON DAYS 1-5 AND 8-12
     Route: 041
  2. FLUOROURACIL [Suspect]
  3. LEUCOVORIN CALCIUM [Concomitant]
     Dosage: DOSE: 200 MG/M2 OVER 1 HOURE ON DAYS 1-5 AND 8-12
     Route: 042
  4. LEUCOVORIN CALCIUM [Concomitant]
     Route: 042
  5. MITOMYCIN [Concomitant]
     Dosage: DOSE: 12 MG/M2 OVER 1 HOUR ON DAYS 5 AND12
     Route: 042
  6. RADIOTHERAPY [Concomitant]
     Dosage: DOSE: 1.8 GY (PLANNED TOTAL 50.4 GY)
  7. OXALIPLATIN [Concomitant]
     Dosage: DOSE: UNK
     Route: 042
  8. OXALIPLATIN [Concomitant]
     Dosage: DOSE: UNK
     Route: 042

REACTIONS (1)
  - COLITIS [None]
